FAERS Safety Report 8368432-7 (Version None)
Quarter: 2012Q2

REPORT INFORMATION
  Report Type: 
  Country: None (occurrence: None)
  Receive Date: 20120517
  Receipt Date: 20120517
  Transmission Date: 20120825
  Serious: Yes (Hospitalization)
  Sender: FDA-Public Use
  Company Number: US-ALLERGAN-1202295US

PATIENT
  Age: 36 Year
  Sex: Female

DRUGS (1)
  1. BOTULINUM TOXIN TYPE A [Suspect]
     Indication: TORTICOLLIS
     Dosage: 300 UNITS, SINGLE
     Dates: start: 20111122, end: 20111122

REACTIONS (3)
  - PNEUMOTHORAX [None]
  - DYSPNOEA [None]
  - PYREXIA [None]
